FAERS Safety Report 10170217 (Version 2)
Quarter: 2014Q2

REPORT INFORMATION
  Report Type: Spontaneous
  Country: GB (occurrence: GB)
  Receive Date: 20140513
  Receipt Date: 20140602
  Transmission Date: 20141212
  Serious: Yes (Other)
  Sender: FDA-Public Use
  Company Number: GB-BRISTOL-MYERS SQUIBB COMPANY-20716460

PATIENT
  Age: 66 Year
  Sex: Female

DRUGS (7)
  1. ELIQUIS [Suspect]
     Indication: ATRIAL FIBRILLATION
     Route: 048
     Dates: start: 201402
  2. SOTALOL [Concomitant]
  3. CITALOPRAM [Concomitant]
  4. ATORVASTATIN [Concomitant]
  5. OMEPRAZOLE [Concomitant]
  6. PREGABALIN [Concomitant]
  7. SUMATRIPTAN [Concomitant]

REACTIONS (2)
  - Cardiac ablation [Unknown]
  - Tooth extraction [Unknown]
